FAERS Safety Report 23198761 (Version 1)
Quarter: 2023Q4

REPORT INFORMATION
  Report Type: Other
  Country: FR (occurrence: FR)
  Receive Date: 20231117
  Receipt Date: 20231117
  Transmission Date: 20240109
  Serious: Yes (Hospitalization)
  Sender: FDA-Public Use
  Company Number: FR-PPDUS-2023ST004285

PATIENT
  Sex: Female

DRUGS (1)
  1. ORSERDU [Suspect]
     Active Substance: ELACESTRANT
     Indication: Product used for unknown indication
     Dosage: DOSAGE OF 345 MG (TABLETS OF 400 MG), ONCE A DAY
     Route: 048
     Dates: start: 202311

REACTIONS (2)
  - Vomiting [Unknown]
  - Drug intolerance [Unknown]

NARRATIVE: CASE EVENT DATE: 20231101
